FAERS Safety Report 14252856 (Version 4)
Quarter: 2018Q1

REPORT INFORMATION
  Report Type: Spontaneous
  Country: BR (occurrence: BR)
  Receive Date: 20171205
  Receipt Date: 20180319
  Transmission Date: 20180508
  Serious: Yes (Other)
  Sender: FDA-Public Use
  Company Number: BR-ABBVIE-17P-020-2183665-00

PATIENT
  Sex: Male
  Weight: 15.5 kg

DRUGS (3)
  1. SABRIL [Concomitant]
     Active Substance: VIGABATRIN
     Indication: PRODUCT USED FOR UNKNOWN INDICATION
     Dosage: 1 IN THE MORNING, 1 AT AFTERNOON, 1.5 AT NIGHT
     Route: 048
  2. DEPAKOTE [Suspect]
     Active Substance: DIVALPROEX SODIUM
     Indication: SEIZURE
  3. DEPAKOTE [Suspect]
     Active Substance: DIVALPROEX SODIUM
     Indication: INFANTILE SPASMS
     Dosage: 1 CAPSULE AT 09:00 (MORNING) ,1 CAPSULE AT 03:00 (AFTERNOON), 2 CAPSULES AT 09:00 (NIGHT)
     Route: 065
     Dates: start: 201612

REACTIONS (5)
  - Drug effect variable [Unknown]
  - Product quality issue [Unknown]
  - Seizure [Recovering/Resolving]
  - Product use issue [Not Recovered/Not Resolved]
  - Off label use [Not Recovered/Not Resolved]
